FAERS Safety Report 6765543-4 (Version None)
Quarter: 2010Q2

REPORT INFORMATION
  Report Type: 
  Country: None (occurrence: None)
  Receive Date: 20100611
  Receipt Date: 20100610
  Transmission Date: 20101027
  Serious: Yes (Hospitalization)
  Sender: FDA-Public Use
  Company Number: US-ROXANE LABORATORIES, INC.-2009-RO-00356RO

PATIENT
  Sex: Male
  Weight: 63 kg

DRUGS (16)
  1. PREDNISONE [Suspect]
     Indication: DIFFUSE LARGE B-CELL LYMPHOMA
     Route: 048
     Dates: start: 20090123
  2. ENZASTAURIN [Suspect]
     Indication: DIFFUSE LARGE B-CELL LYMPHOMA
     Dosage: 1125 MG
     Route: 048
     Dates: start: 20090124, end: 20090124
  3. ENZASTAURIN [Suspect]
     Dosage: 500 MG
     Route: 048
     Dates: start: 20090125, end: 20090319
  4. RITUXIMAB [Suspect]
     Indication: DIFFUSE LARGE B-CELL LYMPHOMA
     Route: 042
     Dates: start: 20090123
  5. CYCLOPHOSPHAMIDE [Suspect]
     Indication: DIFFUSE LARGE B-CELL LYMPHOMA
     Route: 042
     Dates: start: 20090123
  6. DOXORUBICIN HCL [Suspect]
     Indication: DIFFUSE LARGE B-CELL LYMPHOMA
     Route: 042
     Dates: start: 20090123
  7. VINCRISTINE [Suspect]
     Indication: DIFFUSE LARGE B-CELL LYMPHOMA
     Route: 042
     Dates: start: 20090123
  8. FENTANYL [Concomitant]
     Route: 062
     Dates: start: 20090320
  9. HYDROMORPHONE HCL [Concomitant]
     Dates: start: 20090119
  10. IRON [Concomitant]
     Dates: start: 20090123
  11. MARINOL [Concomitant]
     Dates: start: 20090113
  12. OMEPRAZOLE [Concomitant]
     Dates: start: 20090127
  13. PREDNISONE [Concomitant]
     Dates: start: 20090106
  14. ZOFRAN [Concomitant]
     Dates: start: 20090127
  15. MEGESTROL ACETATE [Concomitant]
     Dates: start: 20090306
  16. MD ANDERSON MOUTHWASH [Concomitant]
     Indication: STOMATITIS
     Dates: start: 20090306

REACTIONS (16)
  - ANAEMIA [None]
  - ATELECTASIS [None]
  - CARDIOMEGALY [None]
  - DEHYDRATION [None]
  - DIZZINESS [None]
  - DYSPNOEA [None]
  - ESCHERICHIA INFECTION [None]
  - FATIGUE [None]
  - HEART RATE INCREASED [None]
  - HYPOCALCAEMIA [None]
  - HYPOTENSION [None]
  - NEUTROPENIA [None]
  - ORAL CANDIDIASIS [None]
  - PLEURAL EFFUSION [None]
  - PNEUMONIA [None]
  - SUPRAVENTRICULAR TACHYCARDIA [None]
